FAERS Safety Report 15074634 (Version 1)
Quarter: 2018Q2

REPORT INFORMATION
  Report Type: Spontaneous
  Country: None (occurrence: US)
  Receive Date: 20180627
  Receipt Date: 20180627
  Transmission Date: 20180711
  Serious: Yes (Other)
  Sender: FDA-Public Use
  Company Number: US-SAOL THERAPEUTICS-2018SAO00846

PATIENT
  Age: 70 Year
  Sex: Male

DRUGS (2)
  1. UNIDENTIFIED BLOOD THINNER [Concomitant]
  2. LIORESAL [Suspect]
     Active Substance: BACLOFEN
     Indication: MUSCLE SPASTICITY
     Dosage: UNK
     Route: 037

REACTIONS (2)
  - Thrombosis [Unknown]
  - Device failure [Unknown]

NARRATIVE: CASE EVENT DATE: 20180516
